FAERS Safety Report 9850883 (Version 5)
Quarter: 2015Q2

REPORT INFORMATION
  Report Type: Spontaneous
  Country: US (occurrence: US)
  Receive Date: 20140128
  Receipt Date: 20150416
  Transmission Date: 20150821
  Serious: Yes (Death, Life-Threatening, Hospitalization, Disabling, Other)
  Sender: FDA-Public Use
  Company Number: US-MERCK-1401USA012760

PATIENT
  Sex: Female
  Weight: 68.27 kg

DRUGS (1)
  1. JANUVIA [Suspect]
     Active Substance: SITAGLIPTIN PHOSPHATE
     Indication: TYPE 2 DIABETES MELLITUS
     Dosage: 100 MG, QD
     Route: 048
     Dates: start: 201004, end: 20120511

REACTIONS (21)
  - Ovarian cyst [Unknown]
  - Adenocarcinoma pancreas [Fatal]
  - Diabetic neuropathy [Unknown]
  - Skin lesion [Unknown]
  - Jaundice [Unknown]
  - Urine analysis abnormal [Unknown]
  - Pruritus [Unknown]
  - Stent placement [Unknown]
  - Anaemia [Unknown]
  - Urinary tract infection [Unknown]
  - Peripheral arterial occlusive disease [Unknown]
  - Leukopenia [Unknown]
  - Neutropenia [Unknown]
  - Arthropod bite [Unknown]
  - Onychomycosis [Unknown]
  - Intermittent claudication [Unknown]
  - Blood pressure increased [Unknown]
  - White blood cells urine [Unknown]
  - Somnolence [Unknown]
  - Hypoalbuminaemia [Unknown]
  - Drug ineffective [Unknown]

NARRATIVE: CASE EVENT DATE: 2010
